FAERS Safety Report 17519770 (Version 1)
Quarter: 2020Q1

REPORT INFORMATION
  Report Type: Spontaneous
  Country: US (occurrence: US)
  Receive Date: 20200310
  Receipt Date: 20200310
  Transmission Date: 20200409
  Serious: Yes (Other)
  Sender: FDA-Public Use
  Company Number: US-TEVA-2020-US-1196944

PATIENT
  Age: 77 Year
  Sex: Male

DRUGS (3)
  1. WARFARIN [Suspect]
     Active Substance: WARFARIN
     Indication: ATRIAL FIBRILLATION
     Dosage: 2 MILLIGRAM DAILY;
     Route: 065
  2. FISH OIL [Interacting]
     Active Substance: FISH OIL
     Route: 065
  3. WARFARIN [Interacting]
     Active Substance: WARFARIN
     Dosage: 3.3 MILLIGRAM DAILY;
     Route: 065

REACTIONS (3)
  - Tongue haemorrhage [Unknown]
  - Haemorrhage [Unknown]
  - Drug interaction [Unknown]
